FAERS Safety Report 4643808-X (Version None)
Quarter: 2005Q2

REPORT INFORMATION
  Report Type: 
  Country: None (occurrence: None)
  Receive Date: 20050331
  Receipt Date: 20050218
  Transmission Date: 20051028
  Serious: No
  Sender: FDA-Public Use
  Company Number: 05P-163-0291364-00

PATIENT
  Age: 61 Year
  Sex: Female

DRUGS (12)
  1. HUMIRA [Suspect]
     Indication: RHEUMATOID ARTHRITIS
     Dosage: 40 MG, 1 IN 2 WK, SUBCUTANEOUS
     Route: 058
     Dates: start: 20030101
  2. CALCIUM GLUCONATE [Concomitant]
  3. GLUCONAL [Concomitant]
  4. AZATHROPIN [Concomitant]
  5. LEVOTHYROXINE SODIUM [Concomitant]
  6. DIGOXINZINE [Concomitant]
  7. FUROSEMIDE [Concomitant]
  8. BENOCAR [Concomitant]
  9. ACETYL SALICYLIC ACID USP BAT [Concomitant]
  10. NISOLDIPINE [Concomitant]
  11. SALBUTAMOL [Concomitant]
  12. SPIRIVA [Concomitant]

REACTIONS (1)
  - PNEUMONIA [None]
